FAERS Safety Report 24181306 (Version 1)
Quarter: 2024Q3

REPORT INFORMATION
  Report Type: Spontaneous
  Country: CN (occurrence: CN)
  Receive Date: 20240807
  Receipt Date: 20240807
  Transmission Date: 20241017
  Serious: Yes (Death)
  Sender: STRIDES
  Company Number: CN-STRIDES ARCOLAB LIMITED-2024SP009790

PATIENT
  Age: 66 Year
  Sex: Male

DRUGS (9)
  1. METHOTREXATE [Suspect]
     Active Substance: METHOTREXATE
     Indication: Psoriasis
     Dosage: UNK
     Route: 065
  2. METHOTREXATE [Suspect]
     Active Substance: METHOTREXATE
     Dosage: 15 MILLIGRAM, WEEKLY
     Route: 065
     Dates: start: 202007, end: 202110
  3. ADALIMUMAB [Suspect]
     Active Substance: ADALIMUMAB
     Indication: Psoriasis
     Dosage: 80 MILLIGRAM, EVERY 2 WEEKS
     Route: 065
     Dates: start: 201808
  4. ADALIMUMAB [Suspect]
     Active Substance: ADALIMUMAB
     Dosage: UNK
     Route: 065
     Dates: start: 202007, end: 202110
  5. ELASOMERAN [Suspect]
     Active Substance: ELASOMERAN
     Indication: COVID-19 immunisation
     Dosage: UNK, SINGLE (FIRST DOSE)
     Route: 065
     Dates: start: 20210713, end: 20210713
  6. ELASOMERAN [Suspect]
     Active Substance: ELASOMERAN
     Dosage: UNK, SINGLE (SECOND DOSE)
     Route: 065
     Dates: start: 20211026, end: 20211026
  7. USTEKINUMAB [Suspect]
     Active Substance: USTEKINUMAB
     Indication: Psoriasis
     Dosage: UNK
     Route: 065
  8. CYCLOSPORINE [Suspect]
     Active Substance: CYCLOSPORINE
     Indication: Psoriasis
     Dosage: UNK
     Route: 065
  9. ACITRETIN [Concomitant]
     Active Substance: ACITRETIN
     Indication: Psoriasis
     Dosage: UNK
     Route: 065

REACTIONS (3)
  - Angioimmunoblastic T-cell lymphoma [Fatal]
  - Disseminated intravascular coagulation [Fatal]
  - Epstein-Barr virus infection [Unknown]
